APPROVED DRUG PRODUCT: IBUPROFEN AND FAMOTIDINE
Active Ingredient: FAMOTIDINE; IBUPROFEN
Strength: 26.6MG;800MG
Dosage Form/Route: TABLET;ORAL
Application: A211890 | Product #001 | TE Code: AB
Applicant: ALKEM LABORATORIES LTD
Approved: Aug 3, 2021 | RLD: No | RS: Yes | Type: RX